FAERS Safety Report 7057825-6 (Version None)
Quarter: 2010Q4

REPORT INFORMATION
  Report Type: 
  Country: None (occurrence: None)
  Receive Date: 20101021
  Receipt Date: 20101021
  Transmission Date: 20110411
  Serious: Yes (Death)
  Sender: FDA-Public Use
  Company Number: None

PATIENT
  Age: 18 Day
  Sex: Female
  Weight: 4 kg

DRUGS (1)
  1. OCTREOTIDE ACETATE [Suspect]
     Indication: HYPERINSULINAEMIA
     Dosage: 8 MCG Q6H SQ
     Route: 058
     Dates: start: 20100415, end: 20100427

REACTIONS (8)
  - CARDIO-RESPIRATORY ARREST [None]
  - HEPATIC NECROSIS [None]
  - HYPERKALAEMIA [None]
  - HYPOGLYCAEMIA [None]
  - METABOLIC ACIDOSIS [None]
  - NECROTISING COLITIS [None]
  - RESPIRATORY DISTRESS [None]
  - THROMBOSIS MESENTERIC VESSEL [None]
